FAERS Safety Report 8936895 (Version 3)
Quarter: 2013Q3

REPORT INFORMATION
  Report Type: Spontaneous
  Country: TN (occurrence: TN)
  Receive Date: 20121130
  Receipt Date: 20130905
  Transmission Date: 20140515
  Serious: Yes (Other)
  Sender: FDA-Public Use
  Company Number: PHHY2012TN109411

PATIENT
  Age: 60 Year
  Sex: Male

DRUGS (2)
  1. AMOXICILLIN [Suspect]
     Dosage: 500 MG, UNK
  2. PARACETAMOL [Concomitant]

REACTIONS (4)
  - Drug eruption [Unknown]
  - Skin plaque [Unknown]
  - Rash pruritic [Unknown]
  - Skin hyperpigmentation [Unknown]
